FAERS Safety Report 6959281-2 (Version None)
Quarter: 2010Q3

REPORT INFORMATION
  Report Type: 
  Country: None (occurrence: None)
  Receive Date: 20100831
  Receipt Date: 20100805
  Transmission Date: 20110219
  Serious: No
  Sender: FDA-Public Use
  Company Number: US-PFIZER INC-2010087648

PATIENT
  Sex: Female
  Weight: 58.957 kg

DRUGS (2)
  1. XALATAN [Suspect]
     Dosage: 1 GTT, DAILY
     Route: 047
  2. METFORMIN [Concomitant]
     Indication: DIABETES MELLITUS
     Dosage: 1000 MG, DAILY
     Route: 048

REACTIONS (1)
  - EYE IRRITATION [None]
